FAERS Safety Report 21060463 (Version 1)
Quarter: 2022Q3

REPORT INFORMATION
  Report Type: Spontaneous
  Country: US (occurrence: US)
  Receive Date: 20220708
  Receipt Date: 20220708
  Transmission Date: 20221026
  Serious: No
  Sender: FDA-Public Use
  Company Number: US-SA-SAC20220705001736

PATIENT
  Age: 17 Year
  Sex: Female

DRUGS (8)
  1. DUPIXENT [Suspect]
     Active Substance: DUPILUMAB
     Indication: Dermatitis atopic
     Dosage: 1 DF, QOW
     Route: 058
     Dates: start: 20220526
  2. DOXYCYCLINE [Concomitant]
     Active Substance: DOXYCYCLINE
  3. ZEAXANTHIN [Concomitant]
     Active Substance: ZEAXANTHIN
  4. BETAMETHASONE [Concomitant]
     Active Substance: BETAMETHASONE
  5. DESONIDE [Concomitant]
     Active Substance: DESONIDE
  6. OMEGA PLUS [Concomitant]
  7. VITAMINS [Concomitant]
     Active Substance: VITAMINS
  8. EYE HEALTH [Concomitant]

REACTIONS (2)
  - Dry eye [Unknown]
  - Eye irritation [Unknown]

NARRATIVE: CASE EVENT DATE: 20220526
